FAERS Safety Report 23813458 (Version 1)
Quarter: 2024Q2

REPORT INFORMATION
  Report Type: Spontaneous
  Country: CA (occurrence: CA)
  Receive Date: 20240503
  Receipt Date: 20240503
  Transmission Date: 20240715
  Serious: Yes (Death, Other)
  Sender: FDA-Public Use
  Company Number: CA-SAMSUNG BIOEPIS-SB-2024-13135

PATIENT
  Age: 83 Year
  Sex: Female

DRUGS (1)
  1. RENFLEXIS [Suspect]
     Active Substance: INFLIXIMAB-ABDA
     Indication: Psoriatic arthropathy
     Dosage: 5 MG/KG
     Route: 042

REACTIONS (1)
  - Death [Fatal]
